FAERS Safety Report 4373139-7 (Version None)
Quarter: 2004Q2

REPORT INFORMATION
  Report Type: 
  Country: None (occurrence: None)
  Receive Date: 20040603
  Receipt Date: 20040526
  Transmission Date: 20050107
  Serious: Yes (Hospitalization)
  Sender: FDA-Public Use
  Company Number: 2004215368US

PATIENT
  Age: 74 Year
  Sex: Male

DRUGS (5)
  1. BEXTRA [Suspect]
     Indication: ARTHRITIS
     Dosage: 10 MG, QD
  2. NIFEDIPINE [Concomitant]
  3. MONOPRIL [Concomitant]
  4. DIPYRIDAMOLE [Concomitant]
  5. DIGOXIN [Concomitant]

REACTIONS (1)
  - CORONARY ARTERY SURGERY [None]
